FAERS Safety Report 5974249-0 (Version None)
Quarter: 2008Q4

REPORT INFORMATION
  Report Type: 
  Country: None (occurrence: None)
  Receive Date: 20081201
  Receipt Date: 20081126
  Transmission Date: 20090506
  Serious: Yes (Hospitalization)
  Sender: FDA-Public Use
  Company Number: DE-PFIZER INC-2008084666

PATIENT
  Sex: Male

DRUGS (2)
  1. MACUGEN [Suspect]
     Indication: MACULAR DEGENERATION
     Route: 031
     Dates: start: 20070502, end: 20071128
  2. RANIBIZUMAB [Suspect]
     Dates: start: 20080123

REACTIONS (1)
  - CEREBROVASCULAR ACCIDENT [None]
